FAERS Safety Report 9041801 (Version 1)
Quarter: 2013Q1

REPORT INFORMATION
  Report Type: Report from Study
  Country: US (occurrence: US)
  Receive Date: 20130129
  Receipt Date: 20130129
  Transmission Date: 20140127
  Serious: No
  Sender: FDA-Public Use
  Company Number: US-ABBOTT-12P-163-0902869-00

PATIENT
  Age: 57 Year
  Sex: Female

DRUGS (7)
  1. HUMIRA 40 MG/0.8 ML PEN [Suspect]
     Indication: CROHN^S DISEASE
     Dates: start: 200901
  2. ZOCOR [Concomitant]
     Indication: BLOOD CHOLESTEROL INCREASED
  3. ASACOL [Concomitant]
     Indication: CROHN^S DISEASE
     Dosage: 6 PILLS TWICE DAILY
     Route: 048
  4. VITAMIN D [Concomitant]
     Indication: VITAMIN D DECREASED
  5. VITAMIN D [Concomitant]
     Indication: VITAMIN D DECREASED
  6. CYMBALTA [Concomitant]
     Indication: HOT FLUSH
  7. CYMBALTA [Concomitant]
     Indication: SEDATIVE THERAPY

REACTIONS (3)
  - Urticaria [Not Recovered/Not Resolved]
  - Injection site pain [Not Recovered/Not Resolved]
  - Injection site bruising [Not Recovered/Not Resolved]
